FAERS Safety Report 9697262 (Version 1)
Quarter: 2013Q4

REPORT INFORMATION
  Report Type: Report from Study
  Country: CZ (occurrence: CZ)
  Receive Date: 20131120
  Receipt Date: 20131120
  Transmission Date: 20140711
  Serious: Yes (Hospitalization, Other)
  Sender: FDA-Public Use
  Company Number: CZ-ROCHE-1305906

PATIENT
  Age: 35 Year
  Sex: Male
  Weight: 104 kg

DRUGS (2)
  1. PEGASYS [Suspect]
     Indication: CHRONIC HEPATITIS C
     Dosage: 24 WEEK
     Route: 058
     Dates: start: 201201
  2. COPEGUS [Suspect]
     Indication: CHRONIC HEPATITIS C
     Route: 048
     Dates: start: 201201

REACTIONS (4)
  - Depression [Unknown]
  - Pancytopenia [Unknown]
  - Fatigue [Unknown]
  - Malaise [Unknown]
